FAERS Safety Report 15814838 (Version 2)
Quarter: 2019Q1

REPORT INFORMATION
  Report Type: Report from Study
  Country: DE (occurrence: DE)
  Receive Date: 20190111
  Receipt Date: 20190129
  Transmission Date: 20190417
  Serious: Yes (Hospitalization)
  Sender: FDA-Public Use
  Company Number: DE-ACCORD-101238

PATIENT
  Age: 58 Year
  Sex: Female
  Weight: 41 kg

DRUGS (6)
  1. CARBOPLATIN. [Suspect]
     Active Substance: CARBOPLATIN
     Indication: HEAD AND NECK CANCER
     Dosage: 5 AUC
     Dates: start: 20170621, end: 20170720
  2. PARACETAMOL [Concomitant]
     Active Substance: ACETAMINOPHEN
     Indication: PREMEDICATION
  3. ERBITUX [Suspect]
     Active Substance: CETUXIMAB
     Indication: HEAD AND NECK CANCER
     Dosage: ALSO RECEIVED 250 MG/M2 MILLIGRAM ON 05-JUL-2017.
     Route: 042
     Dates: start: 20170704
  4. PLIAZON [Concomitant]
     Indication: PROPHYLAXIS
  5. ERBITUX [Suspect]
     Active Substance: CETUXIMAB
     Indication: HEAD AND NECK CANCER
     Route: 042
  6. 5-FLUOROURACIL [Suspect]
     Active Substance: FLUOROURACIL
     Indication: HEAD AND NECK CANCER
     Dosage: ALSO RECEIVED 600 MG/M2 MILLIGRAM ON 20-JUL-2017,2000 MG/M2 MILLIGRAM
     Dates: start: 20170621, end: 20170626

REACTIONS (7)
  - Neutrophil count decreased [Unknown]
  - Enterocolitis infectious [Recovered/Resolved]
  - Anaemia [Recovered/Resolved]
  - Off label use [Unknown]
  - Platelet count decreased [Not Recovered/Not Resolved]
  - Mucosal inflammation [Unknown]
  - Weight decreased [Not Recovered/Not Resolved]

NARRATIVE: CASE EVENT DATE: 201706
